FAERS Safety Report 9485978 (Version 2)
Quarter: 2013Q3

REPORT INFORMATION
  Report Type: Spontaneous
  Country: PT (occurrence: None)
  Receive Date: 20130813
  Receipt Date: 20130826
  Transmission Date: 20140515
  Serious: Yes (Hospitalization)
  Sender: FDA-Public Use
  Company Number: ACO_37206_2013

PATIENT
  Age: 40 Year
  Sex: Male
  Weight: 75 kg

DRUGS (3)
  1. FAMPRIDINE-SR [Suspect]
     Indication: MULTIPLE SCLEROSIS
     Route: 048
     Dates: start: 20120710
  2. FINGOLIMOD (FINGOLIMOD) [Concomitant]
  3. VITAMIN B12 (CYANOCOBALAMIN) [Concomitant]

REACTIONS (5)
  - Colitis ischaemic [None]
  - Paraparesis [None]
  - Alanine aminotransferase increased [None]
  - Ataxia [None]
  - Aspartate aminotransferase increased [None]
